FAERS Safety Report 21070165 (Version 1)
Quarter: 2022Q3

REPORT INFORMATION
  Report Type: Spontaneous
  Country: AU (occurrence: AU)
  Receive Date: 20220712
  Receipt Date: 20220712
  Transmission Date: 20221027
  Serious: Yes (Other)
  Sender: FDA-Public Use
  Company Number: AU-NOVARTISPH-NVSC2022AU156566

PATIENT
  Sex: Male
  Weight: 84 kg

DRUGS (7)
  1. OLANZAPINE [Suspect]
     Active Substance: OLANZAPINE
     Indication: Product used for unknown indication
     Dosage: UNK
     Route: 065
  2. QUETIAPINE [Suspect]
     Active Substance: QUETIAPINE
     Indication: Product used for unknown indication
     Dosage: UNK
     Route: 065
  3. CLOZAPINE [Suspect]
     Active Substance: CLOZAPINE
     Indication: Product used for unknown indication
     Dosage: UNK
     Route: 065
     Dates: start: 20211013
  4. CLOZAPINE [Suspect]
     Active Substance: CLOZAPINE
     Dosage: 75 MG, QD (SLOW UPTITRATION)
     Route: 065
     Dates: start: 20211028
  5. CLOZAPINE [Suspect]
     Active Substance: CLOZAPINE
     Dosage: 50 MG, QD
     Route: 065
  6. CLOZAPINE [Suspect]
     Active Substance: CLOZAPINE
     Dosage: 25 MG, QN
     Route: 065
  7. LITHIUM [Concomitant]
     Active Substance: LITHIUM
     Indication: Product used for unknown indication
     Dosage: 450 MG, BID
     Route: 065

REACTIONS (4)
  - Neuroleptic malignant syndrome [Unknown]
  - Myocarditis [Unknown]
  - Mental disorder [Not Recovered/Not Resolved]
  - Psychotic disorder [Unknown]
